FAERS Safety Report 17370596 (Version 1)
Quarter: 2020Q1

REPORT INFORMATION
  Report Type: Spontaneous
  Country: US (occurrence: US)
  Receive Date: 20200205
  Receipt Date: 20200205
  Transmission Date: 20200409
  Serious: No
  Sender: FDA-Public Use
  Company Number: US-BAUSCH-BL-2020-003057

PATIENT
  Age: 76 Year
  Sex: Female

DRUGS (1)
  1. ALTRENO [Suspect]
     Active Substance: TRETINOIN
     Indication: THERAPEUTIC SKIN CARE TOPICAL
     Route: 061
     Dates: start: 20200121, end: 20200123

REACTIONS (1)
  - Application site urticaria [Recovered/Resolved]

NARRATIVE: CASE EVENT DATE: 202001
